FAERS Safety Report 24224281 (Version 1)
Quarter: 2024Q3

REPORT INFORMATION
  Report Type: Spontaneous
  Country: NL (occurrence: NL)
  Receive Date: 20240819
  Receipt Date: 20240819
  Transmission Date: 20241017
  Serious: Yes (Other)
  Sender: TEVA
  Company Number: None

PATIENT
  Age: 71 Year
  Sex: Male
  Weight: 82 kg

DRUGS (1)
  1. DILTIAZEM [Suspect]
     Active Substance: DILTIAZEM
     Indication: Atrial fibrillation
     Dosage: 1 X PER DAY, DILTIAZEM MGA / BRAND NAME NOT SPECIFIED
     Route: 065
     Dates: start: 20240531, end: 20240617

REACTIONS (5)
  - Intestinal obstruction [Recovered/Resolved]
  - Myalgia [Recovering/Resolving]
  - Neuralgia [Recovering/Resolving]
  - Pain of skin [Recovering/Resolving]
  - Arthralgia [Recovering/Resolving]
